FAERS Safety Report 11760480 (Version 1)
Quarter: 2015Q4

REPORT INFORMATION
  Report Type: Spontaneous
  Country: US (occurrence: US)
  Receive Date: 20151120
  Receipt Date: 20151120
  Transmission Date: 20160304
  Serious: Yes (Other)
  Sender: FDA-Public Use
  Company Number: US-BAUSCH-BL-2015-026400

PATIENT
  Sex: Female
  Weight: 91 kg

DRUGS (1)
  1. ATIVAN [Suspect]
     Active Substance: LORAZEPAM
     Indication: FEELING OF RELAXATION
     Route: 065
     Dates: start: 2010

REACTIONS (3)
  - Wrong drug administered [Unknown]
  - Drug hypersensitivity [Unknown]
  - Cardiac failure [Unknown]

NARRATIVE: CASE EVENT DATE: 2010
